FAERS Safety Report 25232052 (Version 1)
Quarter: 2025Q2

REPORT INFORMATION
  Report Type: Spontaneous
  Country: KR (occurrence: KR)
  Receive Date: 20250423
  Receipt Date: 20250423
  Transmission Date: 20250717
  Serious: Yes (Other)
  Sender: MERCK SHARP & DOHME LLC
  Company Number: KR-009507513-2276317

PATIENT
  Age: 49 Year
  Sex: Female

DRUGS (3)
  1. PEMBROLIZUMAB [Suspect]
     Active Substance: PEMBROLIZUMAB
     Dosage: FORMULATION: VIAL
     Route: 042
     Dates: start: 20231208, end: 20240319
  2. PACLITAXEL [Suspect]
     Active Substance: PACLITAXEL
     Dosage: FORMULATION: VIAL
     Route: 042
     Dates: start: 20231215, end: 20240312
  3. CARBOPLATIN [Suspect]
     Active Substance: CARBOPLATIN
     Dosage: FORMULATION: VIAL
     Route: 042
     Dates: start: 20231208, end: 20240220

REACTIONS (1)
  - Thrombocytopenia [Recovered/Resolved]

NARRATIVE: CASE EVENT DATE: 20240312
